FAERS Safety Report 26127443 (Version 2)
Quarter: 2025Q4

REPORT INFORMATION
  Report Type: Spontaneous
  Country: EU (occurrence: EU)
  Receive Date: 20251205
  Receipt Date: 20251222
  Transmission Date: 20260119
  Serious: Yes (Hospitalization)
  Sender: NOVO NORDISK
  Company Number: EU-NOVOPROD-1574659

PATIENT
  Age: 34 Year
  Sex: Female
  Weight: 80 kg

DRUGS (9)
  1. FIASP [Suspect]
     Active Substance: INSULIN ASPART
     Indication: Gestational diabetes
     Dosage: UNK
     Dates: start: 20250414
  2. LEVOTHYROXINE [Concomitant]
     Active Substance: LEVOTHYROXINE
     Dosage: 50 MG
  3. ASPIRIN [Concomitant]
     Active Substance: ASPIRIN
     Dosage: 100 MG
     Dates: start: 20250506
  4. FERROUS SULFATE [Concomitant]
     Active Substance: FERROUS SULFATE
     Dosage: UNK (TABLETS CONTAIN IRON)
     Dates: start: 20250703
  5. CEFUROXIME SODIUM [Concomitant]
     Active Substance: CEFUROXIME SODIUM
     Dosage: 500 MG
     Dates: start: 20250922
  6. UTROGESTAN [Concomitant]
     Active Substance: PROGESTERONE
     Dosage: UNK
     Dates: start: 20250325
  7. UTROGESTAN [Concomitant]
     Active Substance: PROGESTERONE
     Dosage: UNK
     Dates: start: 20250417
  8. UTROGESTAN [Concomitant]
     Active Substance: PROGESTERONE
     Dosage: UNK
     Dates: start: 20251110
  9. METFORMIN [Concomitant]
     Active Substance: METFORMIN HYDROCHLORIDE
     Indication: Polycystic ovaries
     Dosage: UNK

REACTIONS (2)
  - Hospitalisation [Unknown]
  - Maternal exposure during pregnancy [Recovered/Resolved]

NARRATIVE: CASE EVENT DATE: 20250414
